FAERS Safety Report 18261127 (Version 1)
Quarter: 2020Q3

REPORT INFORMATION
  Report Type: Spontaneous
  Country: DE (occurrence: DE)
  Receive Date: 20200914
  Receipt Date: 20200914
  Transmission Date: 20201103
  Serious: Yes (Other)
  Sender: FDA-Public Use
  Company Number: DE-TEVA-2020-DE-1826505

PATIENT
  Sex: Male

DRUGS (4)
  1. TREOSULFAN [Suspect]
     Active Substance: TREOSULFAN
     Route: 065
  2. ATG [Suspect]
     Active Substance: LAPINE T-LYMPHOCYTE IMMUNE GLOBULIN
     Route: 065
  3. FLU [Suspect]
     Active Substance: INFLUENZA VIRUS VACCINE
     Route: 065
  4. ARAC [Suspect]
     Active Substance: CYTARABINE
     Route: 065

REACTIONS (3)
  - Venoocclusive disease [Unknown]
  - Blood bilirubin increased [Unknown]
  - Cholecystitis acute [Unknown]
